FAERS Safety Report 18394574 (Version 1)
Quarter: 2020Q4

REPORT INFORMATION
  Report Type: Spontaneous
  Country: US (occurrence: US)
  Receive Date: 20201016
  Receipt Date: 20201016
  Transmission Date: 20210114
  Serious: No
  Sender: FDA-Public Use
  Company Number: US-CHIASMA-2020CHI00001

PATIENT
  Age: 49 Year
  Sex: Female
  Weight: 61.22 kg

DRUGS (11)
  1. PROTONIX [Concomitant]
     Active Substance: PANTOPRAZOLE SODIUM
  2. COLACE [Concomitant]
     Active Substance: DOCUSATE SODIUM
  3. SINGULAIR [Concomitant]
     Active Substance: MONTELUKAST SODIUM
  4. ALLEGRA [Concomitant]
     Active Substance: FEXOFENADINE HYDROCHLORIDE
  5. ESTRADIOL. [Concomitant]
     Active Substance: ESTRADIOL
  6. XANAX [Concomitant]
     Active Substance: ALPRAZOLAM
  7. TYLENOL [Concomitant]
     Active Substance: ACETAMINOPHEN
     Dosage: EVERY DAY
  8. MYCAPSSA [Suspect]
     Active Substance: OCTREOTIDE
     Indication: ACROMEGALY
     Dosage: 20 MG, 1X/DAY
     Route: 048
     Dates: start: 20200914
  9. MULTIVITAMIN [Concomitant]
     Active Substance: VITAMINS
  10. IMMUNE PLUS VITAMIN [Concomitant]
  11. SPIRONOLACTONE. [Concomitant]
     Active Substance: SPIRONOLACTONE

REACTIONS (11)
  - Hypertension [Unknown]
  - Chest pain [Recovered/Resolved]
  - Flatulence [Not Recovered/Not Resolved]
  - Cardiac disorder [Recovered/Resolved]
  - Vomiting [Recovered/Resolved]
  - Nausea [Not Recovered/Not Resolved]
  - Abdominal distension [Not Recovered/Not Resolved]
  - Product administration error [Recovered/Resolved]
  - Product dose omission issue [Recovered/Resolved]
  - Abdominal discomfort [Not Recovered/Not Resolved]
  - Headache [Not Recovered/Not Resolved]

NARRATIVE: CASE EVENT DATE: 202009
